FAERS Safety Report 5332740-4 (Version None)
Quarter: 2007Q2

REPORT INFORMATION
  Report Type: 
  Country: None (occurrence: None)
  Receive Date: 20070523
  Receipt Date: 20070518
  Transmission Date: 20071010
  Serious: Yes (Hospitalization)
  Sender: FDA-Public Use
  Company Number: GB-MERCK-0705USA03818

PATIENT
  Age: 71 Year
  Sex: Male

DRUGS (6)
  1. PRINIVIL [Suspect]
     Indication: HYPERTENSION
     Route: 048
     Dates: end: 20070501
  2. MELOXICAM [Suspect]
     Indication: GOUT
     Route: 048
     Dates: end: 20070501
  3. ALLOPURINOL [Concomitant]
     Indication: GOUT
     Route: 048
     Dates: end: 20070501
  4. COSOPT [Concomitant]
     Route: 047
  5. LANSOPRAZOLE [Concomitant]
     Indication: DYSPEPSIA
     Route: 048
  6. LERCANIDIPINE [Concomitant]
     Indication: HYPERTENSION
     Route: 048
     Dates: end: 20070501

REACTIONS (6)
  - DEHYDRATION [None]
  - DIARRHOEA [None]
  - DIZZINESS [None]
  - METABOLIC ACIDOSIS [None]
  - RENAL FAILURE ACUTE [None]
  - RENAL IMPAIRMENT [None]
